FAERS Safety Report 7834093-6 (Version None)
Quarter: 2011Q4

REPORT INFORMATION
  Report Type: 
  Country: None (occurrence: None)
  Receive Date: 20111024
  Receipt Date: 20111024
  Transmission Date: 20120403
  Serious: Yes (Other)
  Sender: FDA-Public Use
  Company Number: None

PATIENT
  Age: 35 Year
  Sex: Female
  Weight: 76.203 kg

DRUGS (2)
  1. CYMBALTA [Suspect]
     Indication: DEPRESSION
     Dosage: 30MG
     Route: 048
     Dates: start: 20110909, end: 20111021
  2. NAPROXEN [Concomitant]

REACTIONS (19)
  - DYSPHAGIA [None]
  - OEDEMA GENITAL [None]
  - OEDEMA MOUTH [None]
  - PAINFUL RESPIRATION [None]
  - ERYTHEMA [None]
  - ABDOMINAL PAIN [None]
  - MASS [None]
  - GROIN PAIN [None]
  - FEELING JITTERY [None]
  - ANXIETY [None]
  - SWOLLEN TONGUE [None]
  - MYALGIA [None]
  - URTICARIA [None]
  - MUSCULAR WEAKNESS [None]
  - PUBIC PAIN [None]
  - BURSITIS [None]
  - OEDEMA PERIPHERAL [None]
  - PRURITUS GENERALISED [None]
  - PAIN IN EXTREMITY [None]
